FAERS Safety Report 7515381-X (Version None)
Quarter: 2011Q2

REPORT INFORMATION
  Report Type: 
  Country: None (occurrence: None)
  Receive Date: 20110425
  Receipt Date: 20100606
  Transmission Date: 20111010
  Serious: Yes (Other)
  Sender: FDA-Public Use
  Company Number: MC201000049

PATIENT
  Age: 67 Year
  Sex: Male
  Weight: 109.8 kg

DRUGS (7)
  1. ANGIOMAX [Suspect]
     Indication: PERCUTANEOUS CORONARY INTERVENTION
     Dosage: INTRAVENOUS, 16 ML (@43 ML PER HOUR)
     Route: 042
     Dates: start: 20100209, end: 20100209
  2. ANGIOMAX [Suspect]
     Indication: PERCUTANEOUS CORONARY INTERVENTION
     Dosage: INTRAVENOUS, 16 ML (@43 ML PER HOUR)
     Route: 042
     Dates: start: 20100209, end: 20100209
  3. LISINOPRIL [Concomitant]
  4. ASPIRIN [Concomitant]
  5. PLAVIX [Concomitant]
  6. HYTRIN [Concomitant]
  7. METOPROLOL TARTRATE [Concomitant]

REACTIONS (4)
  - COAGULATION TIME ABNORMAL [None]
  - DRUG ADMINISTRATION ERROR [None]
  - THROMBOSIS IN DEVICE [None]
  - OVERDOSE [None]
